FAERS Safety Report 6202642-X (Version None)
Quarter: 2009Q2

REPORT INFORMATION
  Report Type: 
  Country: None (occurrence: None)
  Receive Date: 20090526
  Receipt Date: 20090514
  Transmission Date: 20091009
  Serious: Yes (Other)
  Sender: FDA-Public Use
  Company Number: US-ELI_LILLY_AND_COMPANY-US200905002948

PATIENT
  Age: 64 Year
  Sex: Female

DRUGS (17)
  1. CYMBALTA [Suspect]
     Indication: BIPOLAR DISORDER
     Dosage: 30 MG, UNK
     Dates: start: 20090417
  2. WARFARIN SODIUM [Concomitant]
     Dosage: 2.2 MG, DAILY (1/D)
  3. EFFEXOR [Concomitant]
     Indication: BIPOLAR DISORDER
  4. CELLCEPT [Concomitant]
     Dosage: 500 MG, 4/D
  5. DEPAKOTE [Concomitant]
     Dosage: 250 MG, 3/D
  6. AMLODIPINE [Concomitant]
     Dosage: 5 MG, DAILY (1/D)
  7. COREG [Concomitant]
     Dosage: 3.125 MG, 2/D
  8. DIGOXIN [Concomitant]
     Dosage: 0.125 MG, DAILY (1/D)
  9. LIPITOR [Concomitant]
     Dosage: 80 MG, DAILY (1/D)
  10. PROGRAF [Concomitant]
     Dosage: 1.5 MG, 2/D
  11. LISINOPRIL [Concomitant]
     Dosage: 20 MG, DAILY (1/D)
  12. LEVOTHYROXINE SODIUM [Concomitant]
     Dosage: 50 MG, DAILY (1/D)
  13. LASIX [Concomitant]
     Dosage: 40 MG, 2/D
  14. NEXIUM [Concomitant]
     Dosage: 40 MG, DAILY (1/D)
  15. ISOSORBIDE DINITRATE [Concomitant]
     Dosage: 10 MG, 3/D
  16. MAGNESIUM OXIDE [Concomitant]
     Dosage: UNK, 2/D
  17. ALBUTEROL [Concomitant]
     Dosage: UNK, DAILY (1/D)

REACTIONS (4)
  - BLOOD PRESSURE DECREASED [None]
  - DECREASED APPETITE [None]
  - INTERNATIONAL NORMALISED RATIO INCREASED [None]
  - POTENTIATING DRUG INTERACTION [None]
